FAERS Safety Report 10077268 (Version 2)
Quarter: 2014Q2

REPORT INFORMATION
  Report Type: Spontaneous
  Country: US (occurrence: US)
  Receive Date: 20140414
  Receipt Date: 20140414
  Transmission Date: 20141212
  Serious: No
  Sender: FDA-Public Use
  Company Number: US-BANPHARM-20131187

PATIENT
  Age: 88 Year
  Sex: Male
  Weight: 65.77 kg

DRUGS (4)
  1. ALEVE LIQUID GELS 220 MG [Suspect]
     Indication: ARTHRITIS
     Dosage: BID,
     Route: 048
     Dates: end: 20130410
  2. COMBIGAN [Concomitant]
     Dosage: LEFT EYE ONLY
  3. CENTRUM MULTIVITAMIN [Concomitant]
  4. 81 MG ST. JOSHEPHS ASPIRIN [Concomitant]

REACTIONS (4)
  - Foreign body [Not Recovered/Not Resolved]
  - Foreign body [Recovered/Resolved]
  - Dysgeusia [Recovered/Resolved]
  - Incorrect drug administration duration [Unknown]
